FAERS Safety Report 17043149 (Version 1)
Quarter: 2019Q4

REPORT INFORMATION
  Report Type: Spontaneous
  Country: None (occurrence: US)
  Receive Date: 20191118
  Receipt Date: 20191118
  Transmission Date: 20200122
  Serious: Yes (Death)
  Sender: FDA-Public Use
  Company Number: US-AKRON, INC.-2076949

PATIENT
  Age: 91 Year
  Sex: Female

DRUGS (1)
  1. ZIOPTAN [Suspect]
     Active Substance: TAFLUPROST
     Route: 047

REACTIONS (1)
  - Death [Fatal]

NARRATIVE: CASE EVENT DATE: 20191018
